FAERS Safety Report 5703737-7 (Version None)
Quarter: 2008Q2

REPORT INFORMATION
  Report Type: 
  Country: None (occurrence: None)
  Receive Date: 20080413
  Receipt Date: 20080404
  Transmission Date: 20081010
  Serious: Yes (Hospitalization)
  Sender: FDA-Public Use
  Company Number: PHRM2008FR01210

PATIENT
  Age: 84 Year
  Sex: Female

DRUGS (1)
  1. ZOMETA [Suspect]
     Indication: METASTASES TO BONE
     Route: 042
     Dates: start: 20040701, end: 20070901

REACTIONS (5)
  - BONE DISORDER [None]
  - OSTEOLYSIS [None]
  - OSTEONECROSIS [None]
  - OSTEOSCLEROSIS [None]
  - PRIMARY SEQUESTRUM [None]
